FAERS Safety Report 12621630 (Version 3)
Quarter: 2016Q3

REPORT INFORMATION
  Report Type: Spontaneous
  Country: US (occurrence: US)
  Receive Date: 20160804
  Receipt Date: 20160808
  Transmission Date: 20161109
  Serious: No
  Sender: FDA-Public Use
  Company Number: US-BEH-2016062892

PATIENT
  Sex: Male
  Weight: 22 kg

DRUGS (11)
  1. BACITRACIN. [Concomitant]
     Active Substance: BACITRACIN
  2. ACETAMINOPHEN. [Concomitant]
     Active Substance: ACETAMINOPHEN
  3. DIPHENHYDRAMINE. [Concomitant]
     Active Substance: DIPHENHYDRAMINE
  4. LIDOCAINE/PRILOCAINE [Concomitant]
     Active Substance: LIDOCAINE\PRILOCAINE
  5. SALINE NASAL SPRAY [Concomitant]
     Active Substance: SODIUM CHLORIDE
  6. GAS-X [Concomitant]
     Active Substance: DIMETHICONE
  7. ACARBOSE. [Concomitant]
     Active Substance: ACARBOSE
  8. HIZENTRA [Suspect]
     Active Substance: HUMAN IMMUNOGLOBULIN G
     Indication: IMMUNODEFICIENCY COMMON VARIABLE
     Dosage: AS DIRECTED
     Route: 058
  9. PREVACID [Concomitant]
     Active Substance: LANSOPRAZOLE
  10. EPIPEN JR [Concomitant]
     Active Substance: EPINEPHRINE
  11. L-M-X [Concomitant]

REACTIONS (1)
  - Infusion related reaction [Unknown]
